FAERS Safety Report 25473209 (Version 1)
Quarter: 2025Q2

REPORT INFORMATION
  Report Type: Spontaneous
  Country: BR (occurrence: BR)
  Receive Date: 20250624
  Receipt Date: 20250624
  Transmission Date: 20250717
  Serious: Yes (Hospitalization, Other)
  Sender: UCB
  Company Number: BR-UCBSA-2025036725

PATIENT
  Age: 3 Year
  Sex: Male

DRUGS (22)
  1. LEVETIRACETAM [Suspect]
     Active Substance: LEVETIRACETAM
     Indication: Generalised tonic-clonic seizure
     Dates: start: 20211021
  2. LEVETIRACETAM [Suspect]
     Active Substance: LEVETIRACETAM
     Indication: Epilepsy with myoclonic-atonic seizures
     Dates: start: 20211104
  3. LEVETIRACETAM [Suspect]
     Active Substance: LEVETIRACETAM
     Indication: Off label use
     Dates: start: 20211130
  4. LEVETIRACETAM [Suspect]
     Active Substance: LEVETIRACETAM
     Dates: start: 20220331
  5. LEVETIRACETAM [Suspect]
     Active Substance: LEVETIRACETAM
     Dates: start: 20220616
  6. LEVETIRACETAM [Suspect]
     Active Substance: LEVETIRACETAM
     Dates: start: 20220622
  7. LEVETIRACETAM [Suspect]
     Active Substance: LEVETIRACETAM
     Dates: start: 20220722, end: 20220815
  8. LEVETIRACETAM [Suspect]
     Active Substance: LEVETIRACETAM
  9. CLOBAZAM [Suspect]
     Active Substance: CLOBAZAM
     Indication: Epilepsy with myoclonic-atonic seizures
     Dates: start: 20211017
  10. CLOBAZAM [Suspect]
     Active Substance: CLOBAZAM
     Dates: start: 20211021
  11. CLOBAZAM [Suspect]
     Active Substance: CLOBAZAM
     Dates: start: 20211104
  12. CLOBAZAM [Suspect]
     Active Substance: CLOBAZAM
     Dates: start: 20220331
  13. CLOBAZAM [Suspect]
     Active Substance: CLOBAZAM
     Dates: start: 20220616
  14. CLOBAZAM [Suspect]
     Active Substance: CLOBAZAM
     Dates: start: 20220622
  15. CLOBAZAM [Suspect]
     Active Substance: CLOBAZAM
     Dates: start: 20220722
  16. CLOBAZAM [Suspect]
     Active Substance: CLOBAZAM
     Dates: start: 20220815
  17. CANNABIDIOL [Suspect]
     Active Substance: CANNABIDIOL
     Indication: Epilepsy with myoclonic-atonic seizures
     Dates: start: 20220331
  18. CANNABIDIOL [Suspect]
     Active Substance: CANNABIDIOL
     Dates: start: 20220616
  19. TOPAMAX [Concomitant]
     Active Substance: TOPIRAMATE
     Indication: Generalised tonic-clonic seizure
     Dates: start: 20220616
  20. TOPAMAX [Concomitant]
     Active Substance: TOPIRAMATE
     Dates: start: 20220622
  21. TOPAMAX [Concomitant]
     Active Substance: TOPIRAMATE
     Dates: start: 20220722
  22. LAMICTAL [Concomitant]
     Active Substance: LAMOTRIGINE
     Indication: Epilepsy with myoclonic-atonic seizures
     Dates: start: 20220722

REACTIONS (3)
  - Seizure [Unknown]
  - Status epilepticus [Unknown]
  - Off label use [Unknown]

NARRATIVE: CASE EVENT DATE: 20211130
